FAERS Safety Report 10654212 (Version 1)
Quarter: 2014Q4

REPORT INFORMATION
  Report Type: Spontaneous
  Country: US (occurrence: None)
  Receive Date: 20141215
  Receipt Date: 20141215
  Transmission Date: 20150529
  Serious: Yes (Hospitalization)
  Sender: FDA-Public Use
  Company Number: None

PATIENT
  Age: 54 Year
  Sex: Female

DRUGS (24)
  1. HUMULIN N [Concomitant]
     Active Substance: INSULIN HUMAN
  2. HUMALOG [Concomitant]
     Active Substance: INSULIN LISPRO
  3. ALLOPURINOL. [Concomitant]
     Active Substance: ALLOPURINOL
  4. LAPPCIN [Concomitant]
  5. LISINOPRIL. [Concomitant]
     Active Substance: LISINOPRIL
  6. ZANAFLEX [Concomitant]
     Active Substance: TIZANIDINE HYDROCHLORIDE
  7. METFORMIN [Concomitant]
     Active Substance: METFORMIN HYDROCHLORIDE
  8. ZANTAC [Concomitant]
     Active Substance: RANITIDINE HYDROCHLORIDE
  9. VALIUM [Concomitant]
     Active Substance: DIAZEPAM
  10. QVAR [Concomitant]
     Active Substance: BECLOMETHASONE DIPROPIONATE
  11. DOCUSATE SODIUM. [Concomitant]
     Active Substance: DOCUSATE SODIUM
  12. AMPYRA [Suspect]
     Active Substance: DALFAMPRIDINE
     Indication: MULTIPLE SCLEROSIS
     Route: 048
     Dates: start: 20100804
  13. LIPITOR [Concomitant]
     Active Substance: ATORVASTATIN CALCIUM
  14. DEXEDRINE [Concomitant]
     Active Substance: DEXTROAMPHETAMINE SULFATE
  15. EXTAVIA [Concomitant]
     Active Substance: INTERFERON BETA-1B
  16. GAMUNEX [Concomitant]
     Active Substance: HUMAN IMMUNOGLOBULIN G
  17. IMITREX [Concomitant]
     Active Substance: SUMATRIPTAN\SUMATRIPTAN SUCCINATE
  18. NEURONTIN [Concomitant]
     Active Substance: GABAPENTIN
  19. PROAIR HFA [Concomitant]
     Active Substance: ALBUTEROL SULFATE
  20. DITROPAN [Concomitant]
     Active Substance: OXYBUTYNIN CHLORIDE
  21. ZOFRAN [Concomitant]
     Active Substance: ONDANSETRON HYDROCHLORIDE
  22. DILTIAZEM [Concomitant]
     Active Substance: DILTIAZEM
  23. GLUCOTROL [Concomitant]
     Active Substance: GLIPIZIDE
  24. DULCOLAX [Concomitant]
     Active Substance: BISACODYL OR DOCUSATE SODIUM

REACTIONS (1)
  - Meningitis [None]

NARRATIVE: CASE EVENT DATE: 20141107
